FAERS Safety Report 7050117-0 (Version None)
Quarter: 2010Q4

REPORT INFORMATION
  Report Type: 
  Country: None (occurrence: None)
  Receive Date: 20101018
  Receipt Date: 20101006
  Transmission Date: 20110411
  Serious: Yes (Other)
  Sender: FDA-Public Use
  Company Number: CA-MERCK-1010USA00785

PATIENT
  Age: 7 Year
  Sex: Male

DRUGS (4)
  1. SINGULAIR [Suspect]
     Route: 048
  2. ALBUTEROL [Concomitant]
     Route: 055
  3. NASONEX [Concomitant]
     Route: 055
  4. FLOVENT HFA [Concomitant]
     Route: 055

REACTIONS (5)
  - AGGRESSION [None]
  - AGITATION [None]
  - DEPRESSION [None]
  - IRRITABILITY [None]
  - SUICIDAL IDEATION [None]
